FAERS Safety Report 12533255 (Version 2)
Quarter: 2021Q1

REPORT INFORMATION
  Report Type: Spontaneous
  Country: US (occurrence: US)
  Receive Date: 20160706
  Receipt Date: 20210209
  Transmission Date: 20210419
  Serious: No
  Sender: FDA-Public Use
  Company Number: US-PURDUE-USA-2015-0127917

PATIENT
  Age: 54 Year
  Sex: Female

DRUGS (5)
  1. FENTANYL CITRATE. [Concomitant]
     Active Substance: FENTANYL CITRATE
     Indication: PAIN
     Route: 065
  2. TRAMADOL. [Concomitant]
     Active Substance: TRAMADOL
     Indication: PAIN
     Route: 048
  3. BUTRANS [Suspect]
     Active Substance: BUPRENORPHINE
     Indication: PAIN
  4. BUTRANS [Suspect]
     Active Substance: BUPRENORPHINE
     Indication: BONE PAIN
     Dosage: 20 MCG/HR, WEEKLY
     Route: 062
     Dates: start: 20050107
  5. BUTRANS [Suspect]
     Active Substance: BUPRENORPHINE
     Indication: LYME DISEASE

REACTIONS (6)
  - Peripheral coldness [None]
  - Pain [Unknown]
  - Application site pain [Unknown]
  - Application site rash [Unknown]
  - Application site pruritus [Unknown]
  - Application site vesicles [Unknown]

NARRATIVE: CASE EVENT DATE: 20151116
